FAERS Safety Report 6615345-4 (Version None)
Quarter: 2010Q1

REPORT INFORMATION
  Report Type: 
  Country: None (occurrence: None)
  Receive Date: 20100305
  Receipt Date: 20090803
  Transmission Date: 20100710
  Serious: No
  Sender: FDA-Public Use
  Company Number: A0800111A

PATIENT
  Age: 48 Year
  Sex: Female

DRUGS (5)
  1. ROPINIROLE [Suspect]
     Indication: RESTLESS LEGS SYNDROME
     Dosage: 1MG PER DAY
     Route: 048
     Dates: start: 20060101
  2. ZOLOFT [Suspect]
  3. VITAMIN C [Concomitant]
  4. CENTRUM [Concomitant]
  5. TYLENOL-500 [Concomitant]

REACTIONS (3)
  - DRUG INTERACTION [None]
  - SWELLING FACE [None]
  - WEIGHT INCREASED [None]
